FAERS Safety Report 7225667-4 (Version None)
Quarter: 2011Q1

REPORT INFORMATION
  Report Type: 
  Country: None (occurrence: None)
  Receive Date: 20110107
  Receipt Date: 20110107
  Transmission Date: 20110831
  Serious: Yes (Disabling, Other)
  Sender: FDA-Public Use
  Company Number: None

PATIENT
  Sex: Male
  Weight: 105.2345 kg

DRUGS (1)
  1. LEVAQUIN [Suspect]
     Indication: SINUSITIS
     Dates: start: 20080601

REACTIONS (8)
  - IMPAIRED WORK ABILITY [None]
  - GRIP STRENGTH DECREASED [None]
  - ABASIA [None]
  - QUALITY OF LIFE DECREASED [None]
  - FATIGUE [None]
  - MALAISE [None]
  - PAIN [None]
  - ANXIETY [None]
